FAERS Safety Report 17159153 (Version 4)
Quarter: 2020Q2

REPORT INFORMATION
  Report Type: Spontaneous
  Country: SE (occurrence: SE)
  Receive Date: 20191216
  Receipt Date: 20200410
  Transmission Date: 20200713
  Serious: Yes (Death)
  Sender: FDA-Public Use
  Company Number: SE-PFIZER INC-2019538506

PATIENT
  Age: 79 Year
  Sex: Female

DRUGS (1)
  1. ZYVOXID [Suspect]
     Active Substance: LINEZOLID
     Indication: DEVICE RELATED INFECTION
     Dosage: 300 MG, DAILY
     Route: 048
     Dates: start: 20190830, end: 201911

REACTIONS (4)
  - Thrombosis [Fatal]
  - Off label use [Unknown]
  - Ischaemic stroke [Fatal]
  - Product use issue [Unknown]

NARRATIVE: CASE EVENT DATE: 2019
